FAERS Safety Report 8798771 (Version 1)
Quarter: 2012Q4

REPORT INFORMATION
  Report Type: Spontaneous
  Country: US (occurrence: None)
  Receive Date: 20120917
  Receipt Date: 20120917
  Transmission Date: 20130627
  Serious: Yes (Life-Threatening, Hospitalization)
  Sender: FDA-Public Use
  Company Number: None

PATIENT
  Age: 28 Year
  Sex: Male
  Weight: 91.63 kg

DRUGS (2)
  1. DAPTOMYCIN [Suspect]
     Indication: OSTEOMYELITIS BACTERIAL
     Route: 042
     Dates: start: 20120803, end: 20120901
  2. DAPTOMYCIN [Suspect]
     Indication: INFECTION MRSA
     Route: 042
     Dates: start: 20120803, end: 20120901

REACTIONS (4)
  - Pneumonia [None]
  - Cough [None]
  - Chest pain [None]
  - Eosinophilia [None]
